FAERS Safety Report 7148088-1 (Version None)
Quarter: 2010Q4

REPORT INFORMATION
  Report Type: 
  Country: None (occurrence: None)
  Receive Date: 20101209
  Receipt Date: 20101129
  Transmission Date: 20110411
  Serious: Yes (Hospitalization)
  Sender: FDA-Public Use
  Company Number: JP-JNJFOC-20101202765

PATIENT
  Age: 73 Year
  Sex: Female

DRUGS (4)
  1. CRAVIT [Suspect]
     Indication: ILL-DEFINED DISORDER
     Route: 048
  2. KAMI-SHOYO-SAN [Suspect]
     Indication: ILL-DEFINED DISORDER
     Route: 048
  3. CHOREITOU [Suspect]
     Indication: DYSURIA
     Route: 065
  4. UNKNOWN MEDICATION [Suspect]
     Indication: MALAISE
     Route: 065

REACTIONS (2)
  - ASCITES [None]
  - CHOLESTATIC LIVER INJURY [None]
